FAERS Safety Report 6642976-8 (Version None)
Quarter: 2010Q1

REPORT INFORMATION
  Report Type: 
  Country: None (occurrence: None)
  Receive Date: 20100319
  Receipt Date: 20100311
  Transmission Date: 20100710
  Serious: Yes (Hospitalization)
  Sender: FDA-Public Use
  Company Number: A0834775A

PATIENT
  Age: 84 Year
  Sex: Female

DRUGS (4)
  1. ADVAIR DISKUS 100/50 [Suspect]
     Indication: EMPHYSEMA
     Dosage: 1PUFF TWICE PER DAY
     Route: 055
     Dates: start: 20090601, end: 20091209
  2. ADVAIR DISKUS 100/50 [Suspect]
     Route: 055
     Dates: start: 20091211
  3. EFFEXOR [Concomitant]
  4. TENORMIN [Concomitant]

REACTIONS (6)
  - DRY MOUTH [None]
  - DRY THROAT [None]
  - DYSARTHRIA [None]
  - DYSPHONIA [None]
  - HIP ARTHROPLASTY [None]
  - SPEECH DISORDER [None]
